FAERS Safety Report 11565475 (Version 4)
Quarter: 2016Q1

REPORT INFORMATION
  Report Type: Spontaneous
  Country: US (occurrence: US)
  Receive Date: 20150928
  Receipt Date: 20160310
  Transmission Date: 20160525
  Serious: No
  Sender: FDA-Public Use
  Company Number: US-OTSUKA-2015_005328

PATIENT
  Sex: Male
  Weight: 104.3 kg

DRUGS (2)
  1. BUPROPION. [Concomitant]
     Active Substance: BUPROPION
     Indication: PRODUCT USED FOR UNKNOWN INDICATION
     Dosage: UNK
     Route: 065
  2. ABILIFY MAINTENA [Suspect]
     Active Substance: ARIPIPRAZOLE
     Indication: SCHIZOPHRENIA
     Dosage: 400 MG, QM
     Route: 030
     Dates: start: 2015

REACTIONS (6)
  - Fatigue [Not Recovered/Not Resolved]
  - Drug intolerance [Unknown]
  - Dysarthria [Not Recovered/Not Resolved]
  - Feeling abnormal [Not Recovered/Not Resolved]
  - Asthenia [Not Recovered/Not Resolved]
  - Abnormal behaviour [Not Recovered/Not Resolved]
